FAERS Safety Report 4558724-1 (Version None)
Quarter: 2005Q1

REPORT INFORMATION
  Report Type: 
  Country: None (occurrence: None)
  Receive Date: 20050119
  Receipt Date: 20050106
  Transmission Date: 20050727
  Serious: Yes (Other)
  Sender: FDA-Public Use
  Company Number: 2005013294

PATIENT
  Age: 47 Year
  Sex: Female
  Weight: 74.8435 kg

DRUGS (2)
  1. DETROL LA [Suspect]
     Indication: HYPERTONIC BLADDER
     Dosage: ORAL
     Route: 048
     Dates: start: 20041214, end: 20050106
  2. MULTIVITAMINS (ASCORBIC ACID, EROCALCIFEROL, FOLIC ACID, NICOTINAMIDE, [Concomitant]

REACTIONS (1)
  - EYE HAEMORRHAGE [None]
